FAERS Safety Report 6531173-2 (Version None)
Quarter: 2010Q1

REPORT INFORMATION
  Report Type: 
  Country: None (occurrence: None)
  Receive Date: 20100108
  Receipt Date: 20100105
  Transmission Date: 20100710
  Serious: Yes (Death)
  Sender: FDA-Public Use
  Company Number: US-ROCHE-675285

PATIENT
  Sex: Female
  Weight: 61.2 kg

DRUGS (1)
  1. CAPECITABINE [Suspect]
     Indication: BREAST CANCER
     Dosage: FOR 14 DAYS OF CYCLE
     Route: 048
     Dates: start: 20090601, end: 20091101

REACTIONS (1)
  - MALIGNANT NEOPLASM PROGRESSION [None]
